FAERS Safety Report 4980696-6 (Version None)
Quarter: 2006Q2

REPORT INFORMATION
  Report Type: 
  Country: None (occurrence: None)
  Receive Date: 20060424
  Receipt Date: 20051215
  Transmission Date: 20061013
  Serious: Yes (Death)
  Sender: FDA-Public Use
  Company Number: US-MERCK-0512USA02535

PATIENT
  Age: 66 Year
  Sex: Male
  Weight: 91 kg

DRUGS (9)
  1. VIOXX [Suspect]
     Indication: SHOULDER PAIN
     Route: 048
     Dates: start: 20010501, end: 20031014
  2. VIOXX [Suspect]
     Indication: RHEUMATOID ARTHRITIS
     Route: 048
     Dates: start: 20010501, end: 20031014
  3. ALPRAZOLAM [Concomitant]
     Route: 065
     Dates: start: 20000101, end: 20031001
  4. VASERETIC [Concomitant]
     Route: 048
  5. ZITHROMAX [Concomitant]
     Route: 065
  6. GUAIFENESIN [Concomitant]
     Route: 065
  7. METHYLPREDNISOLONE [Concomitant]
     Route: 065
  8. TRIMOX [Concomitant]
     Route: 065
  9. BIAXIN [Concomitant]
     Route: 065

REACTIONS (2)
  - BLOOD CHOLESTEROL INCREASED [None]
  - MYOCARDIAL INFARCTION [None]
